FAERS Safety Report 10511160 (Version 1)
Quarter: 2014Q4

REPORT INFORMATION
  Report Type: Spontaneous
  Country: FR (occurrence: FR)
  Receive Date: 20141010
  Receipt Date: 20141010
  Transmission Date: 20150528
  Serious: Yes (Other)
  Sender: FDA-Public Use
  Company Number: FR-MYLANLABS-2014M1006052

PATIENT

DRUGS (3)
  1. BRICANYL [Suspect]
     Active Substance: TERBUTALINE SULFATE
     Indication: BRONCHIAL DISORDER
     Dosage: 1 DF, UNK
     Route: 055
     Dates: start: 20140204, end: 20140211
  2. PREVISCAN                          /00789001/ [Suspect]
     Active Substance: FLUINDIONE
     Indication: PRODUCT USED FOR UNKNOWN INDICATION
  3. BUDESONIDE MYLAN (GENERIC PRODUCT - MANUFACTURER: MYLAN) [Suspect]
     Active Substance: BUDESONIDE
     Indication: BRONCHIAL DISORDER
     Dosage: 1 DF, BID
     Route: 055
     Dates: start: 20140204, end: 20140211

REACTIONS (4)
  - Haemoptysis [Recovering/Resolving]
  - Blood pressure increased [Unknown]
  - Off label use [Recovered/Resolved]
  - Drug ineffective [Unknown]

NARRATIVE: CASE EVENT DATE: 201402
